FAERS Safety Report 7170431-8 (Version None)
Quarter: 2010Q4

REPORT INFORMATION
  Report Type: 
  Country: None (occurrence: None)
  Receive Date: 20101217
  Receipt Date: 20101209
  Transmission Date: 20110411
  Serious: Yes (Life-Threatening, Hospitalization)
  Sender: FDA-Public Use
  Company Number: JP-ROCHE-747541

PATIENT
  Sex: Male
  Weight: 53.2 kg

DRUGS (18)
  1. TOCILIZUMAB [Suspect]
     Indication: RHEUMATOID ARTHRITIS
     Route: 065
     Dates: start: 20100317
  2. OCRELIZUMAB [Suspect]
     Indication: RHEUMATOID ARTHRITIS
     Route: 042
     Dates: start: 20090827, end: 20090910
  3. OCRELIZUMAB [Suspect]
     Route: 042
     Dates: start: 20080925
  4. OCRELIZUMAB [Suspect]
     Route: 042
     Dates: start: 20081009
  5. OCRELIZUMAB [Suspect]
     Route: 042
     Dates: start: 20090312
  6. OCRELIZUMAB [Suspect]
     Route: 042
     Dates: start: 20090326
  7. METHOTREXATE [Suspect]
     Route: 065
     Dates: start: 20080705
  8. PREDNISOLONE [Suspect]
     Route: 065
     Dates: start: 20101108
  9. FOLIC ACID [Concomitant]
     Dates: start: 20070320
  10. METFORMIN HYDROCHLORIDE [Concomitant]
     Dates: start: 20070612
  11. VOGLIBOSE [Concomitant]
     Dates: start: 20070612
  12. PROPIVERINE HYDROCHLORIDE [Concomitant]
  13. DONEPEZIL HYDROCHLORIDE [Concomitant]
     Dates: start: 20081120
  14. OLMESARTAN MEDOXOMIL [Concomitant]
     Dates: start: 20090114
  15. OMEPRAZOLE [Concomitant]
  16. CARBOCISTEINE [Concomitant]
     Dates: start: 20100421
  17. YOKUKANSAN [Concomitant]
     Dates: start: 20100915
  18. LOXOPROFEN SODIUM [Concomitant]
     Dosage: FREQUENCY: AS NEEDED
     Dates: start: 20080311

REACTIONS (2)
  - GASTROINTESTINAL PERFORATION [None]
  - PERITONITIS [None]
